FAERS Safety Report 13825810 (Version 1)
Quarter: 2017Q3

REPORT INFORMATION
  Report Type: Spontaneous
  Country: GB (occurrence: GB)
  Receive Date: 20170802
  Receipt Date: 20170802
  Transmission Date: 20171127
  Serious: Yes (Other)
  Sender: FDA-Public Use
  Company Number: GB-AMGEN-GBRSP2017112234

PATIENT
  Age: 51 Year
  Sex: Male

DRUGS (1)
  1. BLINCYTO [Suspect]
     Active Substance: BLINATUMOMAB
     Indication: NON-HODGKIN^S LYMPHOMA
     Dosage: 84 MUG, UNK
     Route: 042
     Dates: start: 20170629, end: 20170711

REACTIONS (6)
  - Troponin increased [Unknown]
  - Lung consolidation [Unknown]
  - Chest pain [Recovered/Resolved]
  - Pyrexia [Unknown]
  - Musculoskeletal pain [Unknown]
  - Electrocardiogram ST segment elevation [Unknown]

NARRATIVE: CASE EVENT DATE: 20170712
